FAERS Safety Report 23277103 (Version 1)
Quarter: 2023Q4

REPORT INFORMATION
  Report Type: Spontaneous
  Country: US (occurrence: US)
  Receive Date: 20231208
  Receipt Date: 20231208
  Transmission Date: 20240109
  Serious: Yes (Other)
  Sender: FDA-Public Use
  Company Number: US-AMERICAN REGENT INC-2023001782

PATIENT
  Age: 20 Year
  Sex: Female

DRUGS (3)
  1. VENOFER [Suspect]
     Active Substance: IRON SUCROSE
     Indication: Anaemia
     Dosage: 300 MILLIGRAM IN NS 250 ML INFUSED OVER 1.5 HOURS
     Route: 042
     Dates: start: 20230710, end: 20230710
  2. VENOFER [Suspect]
     Active Substance: IRON SUCROSE
     Indication: Coagulation factor VIII level increased
     Dosage: 300 MILLIGRAM IN NS 250 ML INFUSED OVER 1.5 HOURS
     Route: 042
     Dates: start: 2023, end: 2023
  3. VENOFER [Suspect]
     Active Substance: IRON SUCROSE
     Dosage: 300 MILLIGRAM IN NS 250 ML INFUSED OVER 1.5 HOURS
     Route: 042
     Dates: start: 2023, end: 2023

REACTIONS (2)
  - Infusion related reaction [Recovered/Resolved]
  - Product quality issue [Unknown]

NARRATIVE: CASE EVENT DATE: 20230710
